FAERS Safety Report 7194898-4 (Version None)
Quarter: 2010Q4

REPORT INFORMATION
  Report Type: 
  Country: None (occurrence: None)
  Receive Date: 20101223
  Receipt Date: 20100920
  Transmission Date: 20110411
  Serious: No
  Sender: FDA-Public Use
  Company Number: US-AMGEN-KDL439416

PATIENT

DRUGS (9)
  1. ENBREL [Suspect]
     Indication: PRODUCT USED FOR UNKNOWN INDICATION
     Dosage: 25 MG, 2 TIMES/WK
     Route: 058
  2. CELECOXIB [Concomitant]
     Dosage: 200 MG, UNK
  3. METHOTREXATE [Concomitant]
     Dosage: 2.5 MG, UNK
  4. NIFEDIPINE [Concomitant]
     Dosage: 60 MG, UNK
  5. DILTIAZEM HYDROCHLORIDE [Concomitant]
     Dosage: 180 MG, UNK
  6. FOLIC ACID [Concomitant]
     Dosage: 1 MG, UNK
  7. AMITRIPTYLINE HCL [Concomitant]
     Dosage: 25 MG, UNK
  8. ASPIRIN [Concomitant]
     Dosage: 81 MG, UNK
  9. CALCIUM/VITAMIN D [Concomitant]

REACTIONS (2)
  - FALL [None]
  - OPEN WOUND [None]
